FAERS Safety Report 5134526-2 (Version None)
Quarter: 2006Q4

REPORT INFORMATION
  Report Type: 
  Country: None (occurrence: None)
  Receive Date: 20061025
  Receipt Date: 20061011
  Transmission Date: 20070319
  Serious: Yes (Other)
  Sender: FDA-Public Use
  Company Number: JP-BRISTOL-MYERS SQUIBB COMPANY-13542329

PATIENT
  Age: 20 Year
  Sex: Male

DRUGS (5)
  1. ENDOXAN [Suspect]
     Indication: RENAL TRANSPLANT
     Dates: start: 20051101
  2. BACTRIM [Suspect]
  3. PREDNISOLONE [Suspect]
     Indication: RENAL TRANSPLANT
  4. CYCLOSPORINE [Concomitant]
  5. SIMULECT [Concomitant]
     Dates: end: 20051101

REACTIONS (1)
  - HEPATITIS [None]
